FAERS Safety Report 8075608-5 (Version None)
Quarter: 2012Q1

REPORT INFORMATION
  Report Type: 
  Country: None (occurrence: None)
  Receive Date: 20120127
  Receipt Date: 20120118
  Transmission Date: 20120608
  Serious: Yes (Other)
  Sender: FDA-Public Use
  Company Number: BR-JNJFOC-20120108283

PATIENT
  Age: 65 Year
  Sex: Female

DRUGS (1)
  1. REMICADE [Suspect]
     Indication: RHEUMATOID ARTHRITIS
     Route: 042
     Dates: start: 20090101

REACTIONS (4)
  - PERIORBITAL OEDEMA [None]
  - INFUSION RELATED REACTION [None]
  - URTICARIA [None]
  - ERYTHEMA [None]
